FAERS Safety Report 10109431 (Version 1)
Quarter: 2014Q2

REPORT INFORMATION
  Report Type: Spontaneous
  Country: US (occurrence: None)
  Receive Date: 20140421
  Receipt Date: 20140421
  Transmission Date: 20141212
  Serious: No
  Sender: FDA-Public Use
  Company Number: AEGR000293

PATIENT
  Age: 59 Year
  Sex: Male

DRUGS (4)
  1. JUXTAPID (LOMITAPIDE) CAPSULE, 5 MG [Suspect]
     Indication: HYPERCHOLESTEROLAEMIA
     Route: 048
     Dates: start: 20140121, end: 20140310
  2. ROSUVASTATIN (ROSUVASTATIN) [Concomitant]
  3. NIACIN (NICOTINIC ACID) [Concomitant]
  4. BILE ACID SEQUESTRANTS [Concomitant]

REACTIONS (9)
  - Pollakiuria [None]
  - Glomerular filtration rate abnormal [None]
  - Blood creatinine abnormal [None]
  - Blood urea increased [None]
  - High density lipoprotein decreased [None]
  - Low density lipoprotein increased [None]
  - Off label use [None]
  - Constipation [None]
  - Weight decreased [None]
